FAERS Safety Report 5137447-4 (Version None)
Quarter: 2006Q4

REPORT INFORMATION
  Report Type: 
  Country: None (occurrence: None)
  Receive Date: 20061030
  Receipt Date: 20051104
  Transmission Date: 20070319
  Serious: No
  Sender: FDA-Public Use
  Company Number: US-GLAXOSMITHKLINE-A0580905A

PATIENT
  Age: 49 Year
  Sex: Female

DRUGS (2)
  1. ADVAIR HFA [Suspect]
     Indication: CHRONIC OBSTRUCTIVE PULMONARY DISEASE
     Dosage: 1PUFF TWICE PER DAY
     Route: 055
     Dates: start: 20030601, end: 20050701
  2. ALBUTEROL [Concomitant]

REACTIONS (7)
  - ABDOMINAL DISTENSION [None]
  - IRRITABILITY [None]
  - MALAISE [None]
  - PERSONALITY CHANGE [None]
  - TACHYCARDIA [None]
  - WEIGHT INCREASED [None]
  - WHITE BLOOD CELL COUNT DECREASED [None]
